FAERS Safety Report 8767942 (Version 1)
Quarter: 2012Q4

REPORT INFORMATION
  Report Type: 
  Country: DE (occurrence: DE)
  Receive Date: 20120905
  Receipt Date: 20120905
  Transmission Date: 20130627
  Serious: Yes (Hospitalization, Other)
  Sender: FDA-Public Use
  Company Number: GXKR2012DE002791

PATIENT

DRUGS (2)
  1. RAMIPRIL [Suspect]
     Dosage: Maternal dose: 10 [mg/d ], started on the 2nd day of delivery
  2. METOPROLOL [Concomitant]
     Dosage: Maternal dose: 75 [mg/d ]

REACTIONS (2)
  - Aphthous stomatitis [Recovered/Resolved]
  - Weight gain poor [Recovered/Resolved]
